FAERS Safety Report 17465144 (Version 2)
Quarter: 2020Q1

REPORT INFORMATION
  Report Type: Spontaneous
  Country: US (occurrence: US)
  Receive Date: 20200227
  Receipt Date: 20200324
  Transmission Date: 20200409
  Serious: Yes (Hospitalization, Other)
  Sender: FDA-Public Use
  Company Number: US-DRREDDYS-USA/USA/20/0120196

PATIENT
  Age: 50 Year
  Sex: Female

DRUGS (1)
  1. DOXORUBICIN HYDROCHLORIDE LIPOSOME INJECTION 20 MG/10 ML (2 MG/ML) AND [Suspect]
     Active Substance: DOXORUBICIN HYDROCHLORIDE
     Indication: HEPATOCELLULAR CARCINOMA

REACTIONS (7)
  - Haematoma [Unknown]
  - Hepatic haemorrhage [Unknown]
  - Renal failure [Unknown]
  - Hyperkalaemia [Unknown]
  - Tumour lysis syndrome [Unknown]
  - Hyperuricaemia [Unknown]
  - Haemoglobin decreased [Unknown]
